FAERS Safety Report 13288790 (Version 5)
Quarter: 2017Q2

REPORT INFORMATION
  Report Type: Spontaneous
  Country: US (occurrence: US)
  Receive Date: 20170302
  Receipt Date: 20170516
  Transmission Date: 20170830
  Serious: Yes (Other)
  Sender: FDA-Public Use
  Company Number: US-PFIZER INC-2017089688

PATIENT
  Age: 74 Year
  Sex: Female
  Weight: 81 kg

DRUGS (3)
  1. PREMARIN [Suspect]
     Active Substance: ESTROGENS, CONJUGATED
     Indication: ATROPHIC VULVOVAGINITIS
     Dosage: UNK, APPLY TO EXTERNAL VULVA 2 -3 X /WEEK AT BEDTIME
     Route: 061
     Dates: start: 20170119, end: 20170206
  2. PREMARIN [Suspect]
     Active Substance: ESTROGENS, CONJUGATED
     Indication: VULVAR DYSPLASIA
  3. SOTALOL. [Concomitant]
     Active Substance: SOTALOL
     Indication: ARRHYTHMIA
     Dosage: 80 MG, 1X/DAY
     Route: 048
     Dates: start: 2011

REACTIONS (6)
  - Vulvovaginal pruritus [Unknown]
  - Skin disorder [Unknown]
  - Squamous cell carcinoma of the vulva [Unknown]
  - Lichen sclerosus [Unknown]
  - Drug ineffective [Unknown]
  - Vulvovaginal burning sensation [Unknown]

NARRATIVE: CASE EVENT DATE: 20170131
